FAERS Safety Report 6659659-0 (Version None)
Quarter: 2010Q1

REPORT INFORMATION
  Report Type: 
  Country: None (occurrence: None)
  Receive Date: 20100325
  Receipt Date: 20100315
  Transmission Date: 20100710
  Serious: Yes (Other)
  Sender: FDA-Public Use
  Company Number: GR-1181013

PATIENT
  Age: 28 Year
  Sex: Female

DRUGS (1)
  1. TEARS NATURALS FREE (TEARS NATUREALS) EYE  DROPS, LOT# 90275 EYE DRPOP [Suspect]
     Dosage: OPHTHALMIC, OPHTHALMIC
     Route: 047
     Dates: start: 20100201, end: 20100201

REACTIONS (3)
  - CHORIORETINOPATHY [None]
  - VISUAL ACUITY REDUCED [None]
  - VISUAL IMPAIRMENT [None]
